FAERS Safety Report 6261397-3 (Version None)
Quarter: 2009Q3

REPORT INFORMATION
  Report Type: 
  Country: None (occurrence: None)
  Receive Date: 20090709
  Receipt Date: 20090604
  Transmission Date: 20100115
  Serious: No
  Sender: FDA-Public Use
  Company Number: US-BAYER-200922347NA

PATIENT
  Sex: Female

DRUGS (3)
  1. LEVITRA [Suspect]
     Indication: LIBIDO DECREASED
  2. ANTIDEPRESSANTS [Suspect]
     Indication: DRUG USE FOR UNKNOWN INDICATION
  3. CIALIS [Concomitant]

REACTIONS (1)
  - LIBIDO DECREASED [None]
